FAERS Safety Report 6199199-9 (Version None)
Quarter: 2009Q2

REPORT INFORMATION
  Report Type: 
  Country: None (occurrence: None)
  Receive Date: 20090522
  Receipt Date: 20090518
  Transmission Date: 20091009
  Serious: Yes (Death)
  Sender: FDA-Public Use
  Company Number: DE-ROCHE-633923

PATIENT

DRUGS (2)
  1. CAPECITABINE [Suspect]
     Dosage: 2,000 MG/M2 DAYS 1-14 DIVIDED INTO 2 DAILY DOSES, REPEATED EVERY 21 DAYS AT A MAXIMUM OF 6 CYCLES.
     Route: 048
  2. OXALIPLATIN [Suspect]
     Dosage: ON DAY 1 OF EACH CYCLE. TREATMENT WAS REPEATED EVERY 21 DAYS AT A MAXIMUM OF 6 CYCLES
     Route: 042

REACTIONS (1)
  - DEATH [None]
